FAERS Safety Report 5655210-2 (Version None)
Quarter: 2008Q1

REPORT INFORMATION
  Report Type: 
  Country: None (occurrence: None)
  Receive Date: 20080307
  Receipt Date: 20080226
  Transmission Date: 20080703
  Serious: Yes (Life-Threatening, Hospitalization, Disabling, Other)
  Sender: FDA-Public Use
  Company Number: US-ROCHE-461940

PATIENT
  Age: 47 Year
  Sex: Female
  Weight: 83.5 kg

DRUGS (10)
  1. PEGASYS [Suspect]
     Route: 058
     Dates: start: 20060802, end: 20060829
  2. PEGASYS [Suspect]
     Dosage: COMPLETED 30 WEEKS OF TREATMENT.
     Route: 058
     Dates: start: 20061101, end: 20070904
  3. COPEGUS [Suspect]
     Route: 048
     Dates: start: 20060802, end: 20060831
  4. COPEGUS [Suspect]
     Dosage: ROUTE AND STRENGTH UNKNOWN.
     Route: 048
     Dates: start: 20061122
  5. XANAX [Suspect]
     Indication: INSOMNIA
     Dosage: BEFORE BED TIME WHEN NECESSARY. SECOND INDICATION: PANIC ATTACKS. ROUTE, STRENGTH. FORMULATION, DOS+
     Route: 065
     Dates: end: 20070110
  6. XANAX [Suspect]
     Route: 065
     Dates: start: 20070112
  7. BUSPIRONE HCL [Concomitant]
     Indication: DEPRESSION
     Route: 048
     Dates: start: 20060301
  8. CELEXA [Concomitant]
     Indication: DEPRESSION
  9. WELLBUTRIN [Concomitant]
     Indication: DEPRESSION
  10. PROCRIT [Concomitant]
     Dosage: 1. 100 UNITS. 2. REDUCED IN 2006 TO 50 UNITS. 3. JANUARY 2007 1000 UNITS WEEKLY. 4. MOST CURRENT: 6+
     Dates: start: 20061101

REACTIONS (31)
  - ABDOMINAL DISTENSION [None]
  - AMNESIA [None]
  - ANAEMIA [None]
  - ANXIETY [None]
  - ARTHRALGIA [None]
  - ASTHENIA [None]
  - CHILLS [None]
  - DEPRESSION [None]
  - DYSPEPSIA [None]
  - DYSPNOEA [None]
  - DYSSTASIA [None]
  - FEELING ABNORMAL [None]
  - HEADACHE [None]
  - HEART RATE IRREGULAR [None]
  - ILL-DEFINED DISORDER [None]
  - IMPAIRED DRIVING ABILITY [None]
  - INSOMNIA [None]
  - MENTAL STATUS CHANGES [None]
  - MIGRAINE [None]
  - MUSCULOSKELETAL STIFFNESS [None]
  - MYALGIA [None]
  - NAUSEA [None]
  - NEUROPATHY PERIPHERAL [None]
  - PANCYTOPENIA [None]
  - PLATELET COUNT DECREASED [None]
  - PSYCHOTIC DISORDER [None]
  - PYREXIA [None]
  - RASH PRURITIC [None]
  - RED BLOOD CELL COUNT DECREASED [None]
  - SUICIDE ATTEMPT [None]
  - WHITE BLOOD CELL COUNT DECREASED [None]
